FAERS Safety Report 13214907 (Version 4)
Quarter: 2021Q4

REPORT INFORMATION
  Report Type: Report from Study
  Country: None (occurrence: CA)
  Receive Date: 20170210
  Receipt Date: 20211022
  Transmission Date: 20220303
  Serious: Yes (Death, Hospitalization, Other)
  Sender: FDA-Public Use
  Company Number: CA-ABBVIE-17P-028-1871076-00

PATIENT
  Age: 91 Year
  Sex: Male
  Weight: 59.02 kg

DRUGS (8)
  1. LUPRON DEPOT [Suspect]
     Active Substance: LEUPROLIDE ACETATE
     Indication: Prostate cancer metastatic
     Route: 030
     Dates: start: 20131113, end: 20160317
  2. LUPRON DEPOT [Suspect]
     Active Substance: LEUPROLIDE ACETATE
     Route: 030
     Dates: start: 2016, end: 201608
  3. PROSCAR [Concomitant]
     Active Substance: FINASTERIDE
     Indication: Product used for unknown indication
     Route: 065
     Dates: start: 20131101, end: 20160825
  4. TERAZOSIN [Concomitant]
     Active Substance: TERAZOSIN HYDROCHLORIDE
     Indication: Product used for unknown indication
     Route: 065
     Dates: start: 20131101, end: 20160825
  5. SIMVASTATIN [Concomitant]
     Active Substance: SIMVASTATIN
     Indication: Blood cholesterol
     Route: 048
     Dates: start: 20131101, end: 20160825
  6. ABIRATERONE. [Concomitant]
     Active Substance: ABIRATERONE ACETATE
     Indication: Prostate cancer metastatic
     Dates: start: 20151217, end: 20160825
  7. PREDNISONE [Concomitant]
     Active Substance: PREDNISONE
     Indication: Prostate cancer metastatic
     Route: 048
     Dates: start: 20151217, end: 20160825
  8. XGEVA [Concomitant]
     Active Substance: DENOSUMAB
     Indication: Prostate cancer metastatic
     Route: 058
     Dates: start: 20151005, end: 20160825

REACTIONS (7)
  - Colon cancer [Fatal]
  - Rectal cancer [Unknown]
  - Dehydration [Unknown]
  - Malaise [Unknown]
  - Diarrhoea haemorrhagic [Unknown]
  - Diarrhoea [Unknown]
  - Asthenia [Unknown]

NARRATIVE: CASE EVENT DATE: 20160524
